FAERS Safety Report 6736792-6 (Version None)
Quarter: 2010Q2

REPORT INFORMATION
  Report Type: 
  Country: None (occurrence: None)
  Receive Date: 20100521
  Receipt Date: 20100511
  Transmission Date: 20101027
  Serious: Yes (Other)
  Sender: FDA-Public Use
  Company Number: GB-ABBOTT-10P-167-0643695-00

PATIENT
  Age: 51 Year
  Sex: Female
  Weight: 74.4 kg

DRUGS (2)
  1. SUPRALIP [Suspect]
     Indication: HYPERLIPIDAEMIA
     Route: 048
     Dates: start: 20100416, end: 20100417
  2. EZETROL [Concomitant]
     Indication: HYPERCHOLESTEROLAEMIA
     Route: 048
     Dates: end: 20100402

REACTIONS (4)
  - ERYTHEMA [None]
  - FLUSHING [None]
  - RASH [None]
  - RHABDOMYOLYSIS [None]
